FAERS Safety Report 21077548 (Version 1)
Quarter: 2022Q3

REPORT INFORMATION
  Report Type: Spontaneous
  Country: US (occurrence: US)
  Receive Date: 20220713
  Receipt Date: 20220713
  Transmission Date: 20221027
  Serious: No
  Sender: FDA-Public Use
  Company Number: US-BAYER-2022A089489

PATIENT
  Age: 22 Year
  Sex: Male

DRUGS (3)
  1. CLARITIN [Suspect]
     Active Substance: LORATADINE
     Indication: Seizure
     Dosage: 2 DF, BID
     Route: 048
     Dates: end: 20220627
  2. LAMICTAL [Concomitant]
     Active Substance: LAMOTRIGINE
     Dosage: UNK
  3. FYCOMPA [Concomitant]
     Active Substance: PERAMPANEL

REACTIONS (3)
  - Drug effective for unapproved indication [Recovered/Resolved with Sequelae]
  - Product use issue [None]
  - Fatigue [Unknown]
